FAERS Safety Report 4578565-9 (Version None)
Quarter: 2005Q1

REPORT INFORMATION
  Report Type: 
  Country: None (occurrence: None)
  Receive Date: 20050204
  Receipt Date: 20050204
  Transmission Date: 20050727
  Serious: Yes (Hospitalization)
  Sender: FDA-Public Use
  Company Number: None

PATIENT
  Age: 44 Year
  Sex: Female
  Weight: 53.0709 kg

DRUGS (1)
  1. LEVAQUIN [Suspect]
     Indication: CELLULITIS
     Dosage: 500 MG   DAILY    INTRAVENOU
     Route: 042
     Dates: start: 20050131, end: 20050203

REACTIONS (1)
  - URTICARIA GENERALISED [None]
